FAERS Safety Report 7399512-0 (Version None)
Quarter: 2011Q2

REPORT INFORMATION
  Report Type: 
  Country: None (occurrence: None)
  Receive Date: 20110407
  Receipt Date: 20110328
  Transmission Date: 20111010
  Serious: Yes (Other)
  Sender: FDA-Public Use
  Company Number: US-ELI_LILLY_AND_COMPANY-US201104000449

PATIENT
  Age: 59 Year
  Sex: Female

DRUGS (2)
  1. FORTEO [Suspect]
     Indication: OSTEOPOROSIS
     Dosage: 20 UG, QD
     Dates: end: 20110322
  2. FORTEO [Suspect]
     Dosage: 20 UG, QD
     Dates: start: 20110324

REACTIONS (2)
  - HIP ARTHROPLASTY [None]
  - PROCEDURAL PAIN [None]
